FAERS Safety Report 4686445-3 (Version None)
Quarter: 2005Q2

REPORT INFORMATION
  Report Type: 
  Country: None (occurrence: None)
  Receive Date: 20050606
  Receipt Date: 20050530
  Transmission Date: 20051028
  Serious: Yes (Hospitalization)
  Sender: FDA-Public Use
  Company Number: 2005BH000058

PATIENT
  Age: 24 Year
  Sex: Male
  Weight: 63.6 kg

DRUGS (9)
  1. EXTRANEAL [Suspect]
     Indication: RENAL FAILURE CHRONIC
     Dosage: 2000 ML; EVERY DAY; IP
     Route: 033
     Dates: start: 20040121, end: 20041206
  2. DIANEAL PD2 ULTRABAG [Concomitant]
  3. SELOKEN [Concomitant]
  4. ACECOL [Concomitant]
  5. CALTAN [Concomitant]
  6. FURSULTIAMINE [Concomitant]
  7. NIFEDIPINE [Concomitant]
  8. MICARDIS [Concomitant]
  9. ALDOMET [Concomitant]

REACTIONS (2)
  - CONVULSION [None]
  - DEPRESSED LEVEL OF CONSCIOUSNESS [None]
